FAERS Safety Report 5565413-3 (Version None)
Quarter: 2007Q4

REPORT INFORMATION
  Report Type: 
  Country: None (occurrence: None)
  Receive Date: 20071218
  Receipt Date: 20071206
  Transmission Date: 20080405
  Serious: Yes (Hospitalization)
  Sender: FDA-Public Use
  Company Number: US-ELI_LILLY_AND_COMPANY-US200712001317

PATIENT
  Sex: Female

DRUGS (8)
  1. CYMBALTA [Suspect]
     Indication: FIBROMYALGIA
     Dosage: 30 MG, DAILY (1/D)
     Dates: start: 20050101
  2. CYMBALTA [Suspect]
     Dosage: 90 MG, DAILY (1/D)
  3. CYMBALTA [Suspect]
     Dosage: 30 MG, 3/D
  4. CYMBALTA [Suspect]
     Dosage: 30 MG, 4/D
  5. EVISTA [Concomitant]
  6. TRAZODONE HCL [Concomitant]
  7. MINOCYCLINE HCL [Concomitant]
  8. VITAMINS [Concomitant]

REACTIONS (2)
  - ABDOMINAL PAIN UPPER [None]
  - HERNIA REPAIR [None]
